FAERS Safety Report 15895314 (Version 1)
Quarter: 2019Q1

REPORT INFORMATION
  Report Type: Spontaneous
  Country: GB (occurrence: GB)
  Receive Date: 20190131
  Receipt Date: 20190131
  Transmission Date: 20190417
  Serious: Yes (Other)
  Sender: FDA-Public Use
  Company Number: GB-TORRENT-00020190

PATIENT
  Age: 81 Year
  Sex: Female
  Weight: 64 kg

DRUGS (1)
  1. CLOPIDOGREL [Suspect]
     Active Substance: CLOPIDOGREL BISULFATE
     Indication: CARDIAC DISORDER
     Dosage: UNKNOWN
     Dates: end: 20180922

REACTIONS (9)
  - Diarrhoea [Unknown]
  - Rash [Unknown]
  - Eye haemorrhage [Unknown]
  - Dyspnoea [Unknown]
  - Pruritus [Unknown]
  - Blister [Unknown]
  - Abdominal pain [Unknown]
  - Paraesthesia [Unknown]
  - Cough [Unknown]
